FAERS Safety Report 8555146 (Version 5)
Quarter: 2013Q2

REPORT INFORMATION
  Report Type: Spontaneous
  Country: CA (occurrence: CA)
  Receive Date: 20120510
  Receipt Date: 20130424
  Transmission Date: 20140414
  Serious: Yes (Other)
  Sender: FDA-Public Use
  Company Number: PHHY2011CA82996

PATIENT
  Age: 57 Year
  Sex: Female

DRUGS (7)
  1. GILENYA [Suspect]
     Indication: RELAPSING-REMITTING MULTIPLE SCLEROSIS
     Dosage: 0.5 MG, DAILY
     Route: 048
     Dates: start: 20110706, end: 20111102
  2. GILENYA [Suspect]
     Dosage: 0.5 MG, DAILY
     Route: 048
     Dates: start: 20111110, end: 20121031
  3. GILENYA [Suspect]
     Dosage: UNK
     Route: 048
  4. STEROIDS NOS [Suspect]
  5. SYNTHROID [Concomitant]
     Dosage: .375 MG, OT
  6. VITAMIN D3 [Concomitant]
     Dosage: 1000 IU, QD
  7. MULTIVITAMINS [Concomitant]

REACTIONS (6)
  - Macular oedema [Recovered/Resolved]
  - Visual impairment [Recovering/Resolving]
  - Glaucoma [Recovered/Resolved with Sequelae]
  - Intraocular pressure increased [Recovering/Resolving]
  - Exophthalmos [Not Recovered/Not Resolved]
  - Eye swelling [Not Recovered/Not Resolved]
